FAERS Safety Report 7376054-X (Version None)
Quarter: 2011Q1

REPORT INFORMATION
  Report Type: 
  Country: None (occurrence: None)
  Receive Date: 20110325
  Receipt Date: 20110311
  Transmission Date: 20110831
  Serious: Yes (Other)
  Sender: FDA-Public Use
  Company Number: US-JNJFOC-20100603921

PATIENT
  Sex: Female
  Weight: 88.45 kg

DRUGS (21)
  1. METHOTREXATE [Concomitant]
     Dosage: 0.4 CC
     Route: 058
  2. FOLIC ACID [Concomitant]
  3. CITRACAL [Concomitant]
     Dosage: DOSE 1-2 PER DAY
  4. MIRAPEX [Concomitant]
     Indication: RESTLESS LEGS SYNDROME
     Route: 048
  5. DARVOCET-N 100 [Concomitant]
     Indication: PAIN
     Dosage: THREE TIMES DAILY AS NEEDED
  6. REMICADE [Suspect]
     Route: 042
  7. PRISTIQ [Concomitant]
     Indication: DEPRESSION
  8. CALCIUM CITRATE WITH VITAMIN D [Concomitant]
  9. VITAMIN D [Concomitant]
  10. METHOTREXATE [Concomitant]
     Route: 058
  11. LEXAPRO [Concomitant]
     Route: 048
  12. ASPIRIN [Concomitant]
  13. REMICADE [Suspect]
     Indication: PSORIATIC ARTHROPATHY
     Route: 042
  14. MULTI-VITAMINS [Concomitant]
  15. FOLIC ACID [Concomitant]
  16. CENTRUM SILVER [Concomitant]
  17. METHOTREXATE [Concomitant]
     Route: 058
  18. METHOTREXATE [Concomitant]
     Route: 058
  19. BONIVA [Concomitant]
     Indication: OSTEOPOROSIS
     Route: 048
  20. MOBIC [Concomitant]
  21. REMICADE [Suspect]
     Route: 042

REACTIONS (10)
  - RASH [None]
  - PSORIASIS [None]
  - DYSPNOEA [None]
  - ALOPECIA [None]
  - LUPUS-LIKE SYNDROME [None]
  - THERAPEUTIC RESPONSE DECREASED [None]
  - FATIGUE [None]
  - MUSCULAR WEAKNESS [None]
  - GLOSSITIS [None]
  - PRODUCTIVE COUGH [None]
